FAERS Safety Report 19398824 (Version 1)
Quarter: 2021Q2

REPORT INFORMATION
  Report Type: Spontaneous
  Country: US (occurrence: US)
  Receive Date: 20210610
  Receipt Date: 20210610
  Transmission Date: 20210717
  Serious: Yes (Other)
  Sender: FDA-Public Use
  Company Number: None

PATIENT
  Age: 17 Year
  Weight: 65.25 kg

DRUGS (1)
  1. CLOTRIMAZOLE 10MG LOZENGE [Suspect]
     Active Substance: CLOTRIMAZOLE
     Indication: ORAL FUNGAL INFECTION
     Route: 060

REACTIONS (6)
  - Pyrexia [None]
  - Headache [None]
  - Nasal congestion [None]
  - Toothache [None]
  - Cough [None]
  - Pain [None]

NARRATIVE: CASE EVENT DATE: 20210607
